FAERS Safety Report 11424117 (Version 2)
Quarter: 2020Q4

REPORT INFORMATION
  Report Type: Spontaneous
  Country: None (occurrence: FI)
  Receive Date: 20150827
  Receipt Date: 20201228
  Transmission Date: 20210113
  Serious: Yes (Hospitalization, Other)
  Sender: FDA-Public Use
  Company Number: FI-SA-2015SA118747

PATIENT
  Age: 36 Year
  Sex: Female

DRUGS (28)
  1. HEPARIN [Suspect]
     Active Substance: HEPARIN SODIUM
     Indication: SUPERIOR SAGITTAL SINUS THROMBOSIS
     Dosage: UNKNOWN DOSE
     Route: 042
     Dates: start: 20120728, end: 20120729
  2. CEFTRIAXONE. [Suspect]
     Active Substance: CEFTRIAXONE
     Indication: PNEUMONIA
     Dosage: UNK
     Route: 065
  3. LABETALOL [Concomitant]
     Active Substance: LABETALOL\LABETALOL HYDROCHLORIDE
     Indication: HYPERTENSION
     Dosage: 200 MG, QD
     Route: 065
     Dates: start: 20120817
  4. FOLVITE [Concomitant]
     Active Substance: FOLIC ACID
     Indication: HIGH RISK PREGNANCY
     Dosage: 4 MG, ONCE DAILY (QD)
     Dates: start: 20120816
  5. OBSIDAN [Concomitant]
     Indication: IRON DEFICIENCY ANAEMIA
     Dosage: UNKNOWN DOSE
     Dates: start: 20120815, end: 20120903
  6. LEVETIRACETAM. [Suspect]
     Active Substance: LEVETIRACETAM
     Dosage: 1000 MG,BID
     Route: 065
     Dates: start: 20120729
  7. LEVETIRACETAM. [Suspect]
     Active Substance: LEVETIRACETAM
     Dosage: 3000 MG, QD
  8. ATIVAN [Concomitant]
     Active Substance: LORAZEPAM
     Dosage: UNK
     Route: 065
  9. ENOXAPARIN SODIUM. [Suspect]
     Active Substance: ENOXAPARIN SODIUM
     Indication: SUPERIOR SAGITTAL SINUS THROMBOSIS
     Dosage: 60 MG,BID
     Route: 065
  10. ENOXAPARIN SODIUM. [Suspect]
     Active Substance: ENOXAPARIN SODIUM
     Indication: THROMBOSIS
     Dosage: 40 MG,BID
     Route: 065
     Dates: start: 20120729
  11. FOSPHENYTOIN [Concomitant]
     Active Substance: FOSPHENYTOIN
     Dosage: LOADING DOSE
  12. PRO-EPANUTIN [Concomitant]
     Active Substance: FOSPHENYTOIN SODIUM
     Indication: MYOCLONUS
     Dosage: 250 MG, 2X/DAY (BID)
     Dates: start: 20120729, end: 20120814
  13. LEVETIRACETAM. [Suspect]
     Active Substance: LEVETIRACETAM
     Indication: EPILEPSY
     Dosage: 1000 MG
     Route: 065
  14. LORAZEPAM. [Suspect]
     Active Substance: LORAZEPAM
     Indication: MYOCLONUS
  15. ENOXAPARIN [Concomitant]
     Active Substance: ENOXAPARIN
     Dosage: 60 MG,BID
     Route: 065
  16. HEPARIN [Suspect]
     Active Substance: HEPARIN SODIUM
     Indication: THROMBOSIS
  17. FOSPHENYTOIN [Concomitant]
     Active Substance: FOSPHENYTOIN
     Dosage: 600 MG
  18. SOMAC [Concomitant]
     Active Substance: PANTOPRAZOLE SODIUM
     Indication: PROPHYLAXIS
     Dosage: UNKNOWN DOSE
     Dates: start: 20120729, end: 20120814
  19. HYDANTIN [Concomitant]
     Active Substance: PHENYTOIN
     Dosage: UNKNOWN DOSE
     Dates: start: 20120814, end: 20120910
  20. AMOXIN COMP [Concomitant]
     Active Substance: AMOXICILLIN\CLAVULANIC ACID
     Indication: PNEUMONIA
     Dosage: UNKNOWN DOSE
     Dates: start: 20120820, end: 20120828
  21. DIAZEPAM. [Suspect]
     Active Substance: DIAZEPAM
     Indication: EPILEPSY
     Dosage: 10 MG
     Route: 042
  22. MIDAZOLAM. [Suspect]
     Active Substance: MIDAZOLAM
     Indication: RESTLESSNESS
     Dosage: UNK UNK,UNK
     Route: 065
  23. LORAZEPAM. [Suspect]
     Active Substance: LORAZEPAM
     Indication: EPILEPSY
     Dosage: 6 MG
     Route: 065
  24. FOSPHENYTOIN [Concomitant]
     Active Substance: FOSPHENYTOIN
     Dosage: DOSE WAS INCREASED
  25. PRO-EPANUTIN [Concomitant]
     Active Substance: FOSPHENYTOIN SODIUM
     Dosage: 8500 MG
  26. TAZOCIN [Concomitant]
     Active Substance: PIPERACILLIN SODIUM\TAZOBACTAM SODIUM
     Indication: PNEUMONIA
     Dosage: UNKNOWN DOSE
     Dates: end: 20120830
  27. ENOXAPARIN [Concomitant]
     Active Substance: ENOXAPARIN
     Dosage: 120 MG, QD
  28. PHENYTOINE [Concomitant]
     Active Substance: PHENYTOIN

REACTIONS (5)
  - Product use issue [Unknown]
  - Premature delivery [Unknown]
  - Status epilepticus [Unknown]
  - Exposure during pregnancy [Unknown]
  - Off label use [Unknown]

NARRATIVE: CASE EVENT DATE: 201207
